FAERS Safety Report 22074117 (Version 1)
Quarter: 2023Q1

REPORT INFORMATION
  Report Type: Spontaneous
  Country: US (occurrence: None)
  Receive Date: 20230307
  Receipt Date: 20230307
  Transmission Date: 20230417
  Serious: Yes (Life-Threatening, Hospitalization, Other)
  Sender: FDA-Public Use
  Company Number: None

PATIENT
  Age: 33 Year
  Sex: Female
  Weight: 87.75 kg

DRUGS (2)
  1. CYTOTEC [Suspect]
     Active Substance: MISOPROSTOL
  2. VITAMINS [Concomitant]
     Active Substance: VITAMINS

REACTIONS (9)
  - Erythema [None]
  - Erythema [None]
  - Pruritus [None]
  - Palpitations [None]
  - Palpitations [None]
  - Dizziness [None]
  - Dyspnoea [None]
  - Throat tightness [None]
  - Anaphylactic shock [None]

NARRATIVE: CASE EVENT DATE: 20210809
